FAERS Safety Report 7163184-0 (Version None)
Quarter: 2010Q4

REPORT INFORMATION
  Report Type: 
  Country: None (occurrence: None)
  Receive Date: 20101215
  Receipt Date: 20100310
  Transmission Date: 20110411
  Serious: Yes (Life-Threatening, Hospitalization, Other)
  Sender: FDA-Public Use
  Company Number: DE-PFIZER INC-2010012883

PATIENT
  Age: 43 Year
  Sex: Female
  Weight: 90 kg

DRUGS (5)
  1. LYRICA [Suspect]
     Indication: PAIN
     Dosage: 75 MG, UNK
     Dates: start: 20080101
  2. OXYGESIC [Suspect]
     Indication: PAIN
     Dosage: 80 MG, UNK
     Route: 048
  3. DOLANTIN [Suspect]
     Indication: PAIN
     Dosage: UNK
     Route: 048
  4. COMBAREN [Concomitant]
     Dosage: UNK
  5. TRANCOPAL [Concomitant]
     Dosage: UNK

REACTIONS (2)
  - CONVULSION [None]
  - WEIGHT DECREASED [None]
